FAERS Safety Report 14257629 (Version 1)
Quarter: 2017Q4

REPORT INFORMATION
  Report Type: Spontaneous
  Country: NL (occurrence: NL)
  Receive Date: 20171206
  Receipt Date: 20171206
  Transmission Date: 20180321
  Serious: Yes (Hospitalization)
  Sender: FDA-Public Use
  Company Number: NL-UNICHEM PHARMACEUTICALS (USA) INC-UCM201711-000296

PATIENT
  Age: 56 Year
  Sex: Male

DRUGS (2)
  1. LOSARTAN. [Suspect]
     Active Substance: LOSARTAN
     Dates: start: 201405, end: 201612
  2. BUDESONIDE. [Concomitant]
     Active Substance: BUDESONIDE
     Dates: start: 201610

REACTIONS (1)
  - Gastrointestinal disorder [Recovered/Resolved]
